FAERS Safety Report 7435490-3 (Version None)
Quarter: 2011Q2

REPORT INFORMATION
  Report Type: 
  Country: None (occurrence: None)
  Receive Date: 20110425
  Receipt Date: 20110414
  Transmission Date: 20111010
  Serious: Yes (Death, Other)
  Sender: FDA-Public Use
  Company Number: GB-BAXTER-2011BH011922

PATIENT
  Age: 34 Year
  Sex: Female

DRUGS (9)
  1. RADIOTHERAPY [Suspect]
     Indication: BONE MARROW CONDITIONING REGIMEN
     Route: 065
  2. CYTARABINE [Suspect]
     Indication: CHLOROMA
     Route: 065
  3. FLUDARA [Suspect]
     Indication: CHLOROMA
     Route: 065
  4. GRANULOCYTE COLONY STIMULATING FACTOR [Suspect]
     Indication: CHLOROMA
     Route: 065
  5. CYCLOSPORINE [Concomitant]
     Indication: PROPHYLAXIS AGAINST GRAFT VERSUS HOST DISEASE
     Route: 065
  6. IDARUBICIN HCL [Suspect]
     Indication: CHLOROMA
     Route: 065
  7. METHOTREXATE [Concomitant]
     Indication: PROPHYLAXIS AGAINST GRAFT VERSUS HOST DISEASE
     Route: 065
  8. CYCLOPHOSPHAMIDE [Suspect]
     Indication: BONE MARROW CONDITIONING REGIMEN
     Route: 065
  9. CAMPATH [Suspect]
     Indication: BONE MARROW CONDITIONING REGIMEN
     Route: 065

REACTIONS (5)
  - PNEUMONIA FUNGAL [None]
  - CYTOMEGALOVIRUS CHORIORETINITIS [None]
  - BONE MARROW FAILURE [None]
  - TRANSPLANT FAILURE [None]
  - NEUTROPENIC SEPSIS [None]
